FAERS Safety Report 8776247 (Version 1)
Quarter: 2012Q4

REPORT INFORMATION
  Report Type: 
  Country: US (occurrence: US)
  Receive Date: 20120910
  Receipt Date: 20120910
  Transmission Date: 20130627
  Serious: No
  Sender: FDA-Public Use
  Company Number: US-PFIZER INC-2012221146

PATIENT
  Age: 47 Year
  Sex: Female
  Weight: 71.66 kg

DRUGS (9)
  1. NEURONTIN [Suspect]
     Indication: PAIN IN EXTREMITY
     Dosage: 100 mg, 3x/day
     Route: 048
  2. NEURONTIN [Suspect]
     Indication: BURNING SENSATION
     Dosage: 300 mg, 3x/day
     Dates: start: 20120810
  3. NEURONTIN [Suspect]
     Indication: PARAESTHESIA
     Dosage: 100 mg, 3x/day
  4. TYLENOL [Suspect]
     Indication: PAIN
     Dosage: UNK
  5. ACYCLOVIR [Concomitant]
     Indication: NEOPLASM MALIGNANT
     Dosage: 400 mg, 2x/day
  6. METOPROLOL [Concomitant]
     Indication: CARDIAC DISORDER
     Dosage: 25 mg half tablet 2x/day
     Route: 048
  7. PEPCID [Concomitant]
     Dosage: 20 mg, daily
  8. DECADRON [Concomitant]
     Indication: CHEMOTHERAPY
     Dosage: 10 tablet, once a week (Weekly)
     Route: 048
  9. OXYCODONE [Concomitant]
     Indication: PAIN
     Dosage: 1 tablet. 3x/day
     Route: 048

REACTIONS (3)
  - Drug ineffective [Not Recovered/Not Resolved]
  - Incorrect dose administered [Unknown]
  - Drug intolerance [Unknown]
